FAERS Safety Report 16098590 (Version 2)
Quarter: 2019Q1

REPORT INFORMATION
  Report Type: Report from Study
  Country: IN (occurrence: IN)
  Receive Date: 20190321
  Receipt Date: 20190328
  Transmission Date: 20190418
  Serious: Yes (Other)
  Sender: FDA-Public Use
  Company Number: IN-ROCHE-2285611

PATIENT
  Age: 69 Year
  Sex: Female

DRUGS (1)
  1. AVASTIN [Suspect]
     Active Substance: BEVACIZUMAB
     Indication: OVARIAN CANCER
     Route: 042
     Dates: start: 20181117

REACTIONS (7)
  - Ill-defined disorder [Unknown]
  - Disorientation [Unknown]
  - Drug intolerance [Unknown]
  - Cough [Unknown]
  - Speech disorder [Unknown]
  - Dysarthria [Unknown]
  - Vomiting [Unknown]
